FAERS Safety Report 11037860 (Version 9)
Quarter: 2016Q4

REPORT INFORMATION
  Report Type: Report from Study
  Country: JP (occurrence: JP)
  Receive Date: 20150416
  Receipt Date: 20161202
  Transmission Date: 20170206
  Serious: Yes (Hospitalization, Other)
  Sender: FDA-Public Use
  Company Number: JP-ROCHE-1564240

PATIENT
  Age: 42 Year
  Sex: Male
  Weight: 67 kg

DRUGS (4)
  1. ARGAMATE [Concomitant]
     Active Substance: CALCIUM POLYSTYRENE SULFONATE
     Indication: PROPHYLAXIS
     Route: 048
     Dates: start: 20150414
  2. VEMURAFENIB [Suspect]
     Active Substance: VEMURAFENIB
     Indication: MALIGNANT MELANOMA
     Route: 048
     Dates: start: 20150328, end: 20160106
  3. VEMURAFENIB [Suspect]
     Active Substance: VEMURAFENIB
     Indication: MALIGNANT MELANOMA
     Route: 048
     Dates: start: 20150325, end: 20150325
  4. ARGAMATE [Concomitant]
     Active Substance: CALCIUM POLYSTYRENE SULFONATE
     Indication: PROPHYLAXIS
     Route: 048
     Dates: start: 20150327, end: 20150413

REACTIONS (5)
  - Pyrexia [Recovered/Resolved]
  - Hyperkalaemia [Recovering/Resolving]
  - Bundle branch block right [Recovered/Resolved]
  - Erythema nodosum [Recovered/Resolved]
  - Bundle branch block right [Not Recovered/Not Resolved]

NARRATIVE: CASE EVENT DATE: 20150326
